FAERS Safety Report 9102525 (Version 1)
Quarter: 2013Q1

REPORT INFORMATION
  Report Type: Spontaneous
  Country: BR (occurrence: BR)
  Receive Date: 20130218
  Receipt Date: 20130218
  Transmission Date: 20140127
  Serious: Yes (Other)
  Sender: FDA-Public Use
  Company Number: PHHY2013BR003365

PATIENT
  Age: 24 Year
  Sex: Female
  Weight: 55.8 kg

DRUGS (6)
  1. EXJADE [Suspect]
     Indication: IRON OVERLOAD
     Dosage: 500 MG X 3 TABLETS
     Route: 048
     Dates: start: 201208, end: 20130109
  2. EXJADE [Suspect]
     Dosage: 500 MG X 1 TABLET, DAILY
     Route: 048
     Dates: start: 20130110
  3. HYDREA [Concomitant]
     Indication: SICKLE CELL ANAEMIA
     Dosage: 500 MG X 3 TABLETS, DAILY
     Route: 048
     Dates: start: 201208
  4. FOLIC ACID [Concomitant]
     Indication: BLOOD DISORDER
     Dosage: 5 MG
     Route: 048
  5. PAMELOR [Concomitant]
     Indication: HEADACHE
     Dosage: 25 MG X 1 TABLET EVERY NIGHT
     Route: 048
     Dates: start: 201211
  6. OMEPRAZOLE [Concomitant]
     Indication: ABDOMINAL PAIN UPPER
     Dosage: 20 MG X 1 OR 2 TABLET, DAILY
     Route: 048
     Dates: start: 20130109

REACTIONS (4)
  - Serum ferritin increased [Recovering/Resolving]
  - Nephrolithiasis [Not Recovered/Not Resolved]
  - Retching [Not Recovered/Not Resolved]
  - Nausea [Not Recovered/Not Resolved]
